FAERS Safety Report 7950398-2 (Version None)
Quarter: 2011Q4

REPORT INFORMATION
  Report Type: 
  Country: None (occurrence: None)
  Receive Date: 20111130
  Receipt Date: 20111122
  Transmission Date: 20120403
  Serious: Yes (Death)
  Sender: FDA-Public Use
  Company Number: IE-MEDIMMUNE-MEDI-0013961

PATIENT
  Sex: Male
  Weight: 5.94 kg

DRUGS (1)
  1. SYNAGIS [Suspect]
     Indication: SPINAL MUSCULAR ATROPHY
     Route: 030
     Dates: start: 20111007, end: 20111007

REACTIONS (1)
  - DEATH [None]
